FAERS Safety Report 20841880 (Version 1)
Quarter: 2022Q2

REPORT INFORMATION
  Report Type: Other
  Country: US (occurrence: None)
  Receive Date: 20220518
  Receipt Date: 20220518
  Transmission Date: 20220721
  Serious: Yes (Hospitalization)
  Sender: FDA-Public Use
  Company Number: US-ROCHE-2802176

PATIENT
  Age: 52 Year
  Sex: Male

DRUGS (9)
  1. VALGANCICLOVIR [Suspect]
     Active Substance: VALGANCICLOVIR
     Indication: Cytomegalovirus viraemia
     Dosage: EVERY MONDAY/THURSDAY
     Route: 065
  2. VALGANCICLOVIR [Suspect]
     Active Substance: VALGANCICLOVIR
     Route: 065
  3. VALGANCICLOVIR [Suspect]
     Active Substance: VALGANCICLOVIR
     Route: 065
  4. VALGANCICLOVIR [Suspect]
     Active Substance: VALGANCICLOVIR
     Dosage: FOR 6 MONTHS
     Route: 065
  5. GANCICLOVIR [Suspect]
     Active Substance: GANCICLOVIR
     Indication: Cytomegalovirus viraemia
     Route: 042
  6. TACROLIMUS [Concomitant]
     Active Substance: TACROLIMUS
     Dosage: GOAL 9-11 NG/ML AT 0-3 MONTHS; 7-9 NG/ML 3-6 MONTHS; 6-8 NG/ML AFTER 6 MONTHS
  7. MYCOPHENOLIC ACID [Concomitant]
     Active Substance: MYCOPHENOLIC ACID
  8. PREDNISONE [Concomitant]
     Active Substance: PREDNISONE
     Dosage: 20 MG DAILY TAPERED TO 5 MG AT 3 MONTHS
  9. LETERMOVIR [Concomitant]
     Active Substance: LETERMOVIR

REACTIONS (5)
  - Pyrexia [Unknown]
  - Chills [Unknown]
  - Dyspnoea [Unknown]
  - Drug resistance [Unknown]
  - Off label use [Unknown]
